FAERS Safety Report 6296002-3 (Version None)
Quarter: 2009Q3

REPORT INFORMATION
  Report Type: 
  Country: None (occurrence: None)
  Receive Date: 20090804
  Receipt Date: 20090731
  Transmission Date: 20100115
  Serious: Yes (Death, Hospitalization)
  Sender: FDA-Public Use
  Company Number: PHHY2009MX30938

PATIENT
  Age: 94 Year
  Sex: Female

DRUGS (2)
  1. DIOVAN HCT [Suspect]
     Indication: HYPERTENSION
     Dosage: 1 DF, DAILY
     Route: 048
     Dates: start: 20000101, end: 20090605
  2. PLENACOR (ATENOLOL/NIFEDIPINE) [Concomitant]
     Indication: HYPERTENSION
     Dosage: 1 TABLET PER DAY

REACTIONS (5)
  - ANKLE FRACTURE [None]
  - CARDIO-RESPIRATORY ARREST [None]
  - CEREBRAL ARTERY EMBOLISM [None]
  - FALL [None]
  - HYPERTENSION [None]
